FAERS Safety Report 23379528 (Version 12)
Quarter: 2024Q1

REPORT INFORMATION
  Report Type: Spontaneous
  Country: US (occurrence: US)
  Receive Date: 20240108
  Receipt Date: 20240328
  Transmission Date: 20240410
  Serious: Yes (Disabling, Other)
  Sender: FDA-Public Use
  Company Number: US-PFIZER INC-202400001717

PATIENT
  Age: 74 Year
  Sex: Female

DRUGS (1)
  1. ESTRING [Suspect]
     Active Substance: ESTRADIOL
     Indication: Oestrogen deficiency
     Dosage: 2 MG PER 90 DAYS INTRAVAGINALLY
     Route: 067

REACTIONS (12)
  - Skeletal injury [Not Recovered/Not Resolved]
  - Limb injury [Not Recovered/Not Resolved]
  - Fall [Unknown]
  - Diabetes mellitus [Unknown]
  - Blindness unilateral [Unknown]
  - Ear disorder [Unknown]
  - Meningioma [Unknown]
  - Arterial rupture [Unknown]
  - Neoplasm progression [Unknown]
  - Panic attack [Unknown]
  - Mobility decreased [Unknown]
  - Ocular neoplasm [Unknown]

NARRATIVE: CASE EVENT DATE: 20231222
